FAERS Safety Report 9119573 (Version 4)
Quarter: 2013Q2

REPORT INFORMATION
  Report Type: Report from Study
  Country: IT (occurrence: IT)
  Receive Date: 20130226
  Receipt Date: 20130426
  Transmission Date: 20140414
  Serious: Yes (Death, Life-Threatening)
  Sender: FDA-Public Use
  Company Number: IT-BAXTER-2013BAX006553

PATIENT
  Age: 75 Year
  Sex: Male
  Weight: 61 kg

DRUGS (22)
  1. ENDOXAN BAXTER [Suspect]
     Indication: DIFFUSE LARGE B-CELL LYMPHOMA
     Route: 042
     Dates: start: 20121129
  2. ENDOXAN BAXTER [Suspect]
     Route: 042
     Dates: start: 20130110
  3. RITUXIMAB [Suspect]
     Indication: DIFFUSE LARGE B-CELL LYMPHOMA
     Route: 042
     Dates: start: 20121129
  4. RITUXIMAB [Suspect]
     Route: 042
     Dates: start: 20130110, end: 20130131
  5. DOXORUBICIN [Suspect]
     Indication: DIFFUSE LARGE B-CELL LYMPHOMA
     Route: 042
     Dates: start: 20121129
  6. DOXORUBICIN [Suspect]
     Route: 042
     Dates: start: 20130110
  7. VINCRISTINE [Suspect]
     Indication: DIFFUSE LARGE B-CELL LYMPHOMA
     Route: 040
     Dates: start: 20121129
  8. VINCRISTINE [Suspect]
     Route: 040
     Dates: start: 20130110
  9. PREDNISONE [Suspect]
     Indication: DIFFUSE LARGE B-CELL LYMPHOMA
     Route: 042
     Dates: start: 20121129
  10. PREDNISONE [Suspect]
     Route: 042
     Dates: start: 20130110
  11. PREDNISONE [Suspect]
     Route: 042
     Dates: start: 20130113
  12. METFORMIN HYDROCHLORIDE [Concomitant]
     Indication: DIABETES MELLITUS
     Route: 065
  13. DOXAZOSIN MESILATE [Concomitant]
     Indication: HYPERTENSION
     Route: 065
  14. DARBEPOETIN ALFA [Concomitant]
     Indication: ANAEMIA
     Route: 065
     Dates: start: 20121227
  15. NADROPARIN CALCIUM [Concomitant]
     Indication: ANTICOAGULANT THERAPY
     Route: 065
     Dates: start: 20121227
  16. OLANZAPINE [Concomitant]
     Indication: PSYCHOTIC DISORDER
     Route: 065
     Dates: start: 20121227
  17. GRANISETRON HYDROCHLORIDE [Concomitant]
     Indication: NAUSEA
     Route: 065
     Dates: start: 20121130
  18. GRANISETRON HYDROCHLORIDE [Concomitant]
     Indication: VOMITING
  19. HYDROCORTISONE SODIUM SUCCINATE [Concomitant]
     Indication: ASTHMA
     Route: 065
     Dates: start: 20121129
  20. CHLORPHENIRAMINE MALEATE [Concomitant]
     Indication: HISTAMINE LEVEL INCREASED
     Route: 065
     Dates: start: 20121129
  21. PARACETAMOL [Concomitant]
     Indication: PAIN
     Route: 065
     Dates: start: 20121129
  22. YOVIS [Concomitant]
     Indication: PRODUCT USED FOR UNKNOWN INDICATION
     Route: 065
     Dates: start: 20130110

REACTIONS (2)
  - Infection [Not Recovered/Not Resolved]
  - Disease progression [Fatal]
